FAERS Safety Report 10085637 (Version 3)
Quarter: 2014Q2

REPORT INFORMATION
  Report Type: Report from Study
  Country: CA (occurrence: CA)
  Receive Date: 20140418
  Receipt Date: 20140424
  Transmission Date: 20141212
  Serious: Yes (Other)
  Sender: FDA-Public Use
  Company Number: CA-JNJFOC-20140307104

PATIENT
  Age: 30 Year
  Sex: Female
  Weight: 63 kg

DRUGS (6)
  1. REMICADE [Suspect]
     Indication: ARTHRITIS
     Route: 042
     Dates: start: 20140410
  2. REMICADE [Suspect]
     Indication: ARTHRITIS
     Route: 042
     Dates: start: 20140313
  3. REMICADE [Suspect]
     Indication: ARTHRITIS
     Route: 042
     Dates: start: 20120525
  4. REMICADE [Suspect]
     Indication: CROHN^S DISEASE
     Route: 042
     Dates: start: 20140410
  5. REMICADE [Suspect]
     Indication: CROHN^S DISEASE
     Route: 042
     Dates: start: 20140313
  6. REMICADE [Suspect]
     Indication: CROHN^S DISEASE
     Route: 042
     Dates: start: 20120525

REACTIONS (6)
  - Syncope [Recovered/Resolved]
  - Dehydration [Recovered/Resolved]
  - Pruritus [Recovered/Resolved]
  - Infusion related reaction [Recovered/Resolved]
  - Diarrhoea [Recovered/Resolved]
  - Urinary retention [Not Recovered/Not Resolved]
